FAERS Safety Report 17436994 (Version 1)
Quarter: 2020Q1

REPORT INFORMATION
  Report Type: Spontaneous
  Country: IE (occurrence: IE)
  Receive Date: 20200219
  Receipt Date: 20200219
  Transmission Date: 20200409
  Serious: Yes (Death, Life-Threatening, Other)
  Sender: FDA-Public Use
  Company Number: IE-AMGEN-IRLSP2020025124

PATIENT

DRUGS (7)
  1. LAPATINIB [Suspect]
     Active Substance: LAPATINIB
     Indication: HER-2 POSITIVE BREAST CANCER
     Dosage: UNK, QD (500-1500 MG/DAY)
     Route: 065
  2. LAPATINIB [Suspect]
     Active Substance: LAPATINIB
     Indication: BREAST CANCER METASTATIC
  3. TRASTUZUMAB. [Suspect]
     Active Substance: TRASTUZUMAB
     Indication: BREAST CANCER METASTATIC
  4. TRASTUZUMAB. [Suspect]
     Active Substance: TRASTUZUMAB
     Indication: HER-2 POSITIVE BREAST CANCER
     Dosage: 2 MILLIGRAM/KILOGRAM, QWK (FIXED DOSE)
     Route: 065
  5. DOCETAXEL. [Suspect]
     Active Substance: DOCETAXEL
     Indication: BREAST CANCER METASTATIC
  6. DOCETAXEL. [Suspect]
     Active Substance: DOCETAXEL
     Indication: HER-2 POSITIVE BREAST CANCER
     Dosage: UNK, Q3WK (60-100 MILLIGRAM/SQ. METER)
     Route: 065
  7. FILGRASTIM [Suspect]
     Active Substance: FILGRASTIM
     Indication: PROPHYLAXIS
     Dosage: UNK, QWK
     Route: 065

REACTIONS (30)
  - Neutropenia [Unknown]
  - Neuropathy peripheral [Unknown]
  - Dehydration [Unknown]
  - Cough [Unknown]
  - Arthralgia [Unknown]
  - Cardiac failure [Recovered/Resolved with Sequelae]
  - Fatigue [Unknown]
  - Renal failure [Unknown]
  - Hypotension [Unknown]
  - Alopecia [Unknown]
  - Neutropenic sepsis [Unknown]
  - Pulmonary fibrosis [Unknown]
  - Nausea [Unknown]
  - Colitis [Unknown]
  - Onycholysis [Unknown]
  - Leukopenia [Unknown]
  - Diarrhoea [Unknown]
  - Rash pustular [Unknown]
  - Vomiting [Unknown]
  - Asthenia [Unknown]
  - Dysgeusia [Unknown]
  - General physical health deterioration [Unknown]
  - Hyponatraemia [Unknown]
  - Headache [Unknown]
  - Epistaxis [Unknown]
  - Chronic respiratory disease [Fatal]
  - Hyperkalaemia [Unknown]
  - Nail disorder [Unknown]
  - Rhinorrhoea [Unknown]
  - Disease progression [Unknown]
